FAERS Safety Report 4681107-0 (Version None)
Quarter: 2005Q2

REPORT INFORMATION
  Report Type: 
  Country: None (occurrence: None)
  Receive Date: 20050603
  Receipt Date: 20050407
  Transmission Date: 20051028
  Serious: Yes (Other)
  Sender: FDA-Public Use
  Company Number: US-MERCK-0504USA01084

PATIENT
  Age: 51 Year
  Sex: Female
  Weight: 66 kg

DRUGS (5)
  1. FOSAMAX [Suspect]
     Indication: OSTEOPOROSIS
     Route: 048
     Dates: start: 20010401, end: 20050301
  2. FOSAMAX [Suspect]
     Route: 048
     Dates: start: 20050101, end: 20050101
  3. FOSAMAX [Suspect]
     Indication: OSTEOPENIA
     Route: 048
     Dates: start: 20010401, end: 20050301
  4. FOSAMAX [Suspect]
     Route: 048
     Dates: start: 20050101, end: 20050101
  5. HORMONES (UNSPECIFIED) [Suspect]
     Indication: MENOPAUSE
     Route: 065

REACTIONS (3)
  - ARTHRALGIA [None]
  - JOINT SWELLING [None]
  - PAIN IN EXTREMITY [None]
